FAERS Safety Report 8363503-3 (Version None)
Quarter: 2012Q1

REPORT INFORMATION
  Report Type: 
  Country: None (occurrence: None)
  Receive Date: 20120323
  Receipt Date: 20110923
  Transmission Date: 20120608
  Serious: Yes (Hospitalization)
  Sender: FDA-Public Use
  Company Number: 163-21880-11052187

PATIENT
  Age: 78 Year
  Sex: Male

DRUGS (13)
  1. NEUROPATH (ALL OTHER THERAPEUTIC PRODUCTS) [Concomitant]
  2. FLORASTOR (SACCHAROMYCES BOULARDII) [Concomitant]
  3. VITAMIN D [Concomitant]
  4. COREG [Concomitant]
  5. MULTIVITAMIN [Concomitant]
  6. GABAPENTIN [Concomitant]
  7. REVLIMID [Suspect]
     Indication: PARAPROTEINAEMIA
     Dosage: 25 MG, X 21 DAYS, PO
     Route: 048
     Dates: start: 20110505, end: 20110621
  8. SPIRIVA [Concomitant]
  9. OMEPRAZOLE [Concomitant]
  10. DOXAZOSIN MESYLATE [Concomitant]
  11. NIASPAN [Concomitant]
  12. ASPIRIN [Concomitant]
  13. VALACYCLOVIR [Concomitant]

REACTIONS (6)
  - CELLULITIS [None]
  - PYREXIA [None]
  - CLOSTRIDIAL INFECTION [None]
  - STAPHYLOCOCCAL INFECTION [None]
  - ABSCESS [None]
  - ASTHENIA [None]
